FAERS Safety Report 24616652 (Version 2)
Quarter: 2024Q4

REPORT INFORMATION
  Report Type: Spontaneous
  Country: US (occurrence: US)
  Receive Date: 20241114
  Receipt Date: 20241125
  Transmission Date: 20250115
  Serious: No
  Sender: ROCHE
  Company Number: US-ROCHE-10000128703

PATIENT
  Age: 37 Year
  Sex: Female

DRUGS (1)
  1. XOLAIR PFS [Suspect]
     Active Substance: OMALIZUMAB
     Indication: Idiopathic urticaria
     Dosage: 150MG/ML
     Route: 058

REACTIONS (4)
  - Influenza like illness [Unknown]
  - Fatigue [Unknown]
  - Dizziness [Unknown]
  - Pain [Unknown]
